FAERS Safety Report 15318293 (Version 3)
Quarter: 2019Q3

REPORT INFORMATION
  Report Type: Report from Study
  Country: US (occurrence: US)
  Receive Date: 20180825
  Receipt Date: 20190821
  Transmission Date: 20191004
  Serious: Yes (Other)
  Sender: FDA-Public Use
  Company Number: PHHY2018US080514

PATIENT
  Age: 32 Year
  Sex: Female

DRUGS (1)
  1. GILENYA [Suspect]
     Active Substance: FINGOLIMOD HYDROCHLORIDE
     Indication: MULTIPLE SCLEROSIS
     Dosage: UNK, QD
     Route: 048

REACTIONS (8)
  - Impulsive behaviour [Unknown]
  - White blood cell count decreased [Unknown]
  - Depression [Unknown]
  - Lymphocyte count decreased [Unknown]
  - Melanocytic naevus [Unknown]
  - Initial insomnia [Unknown]
  - Amnesia [Unknown]
  - Seizure [Unknown]

NARRATIVE: CASE EVENT DATE: 20170424
